FAERS Safety Report 10033372 (Version 1)
Quarter: 2014Q1

REPORT INFORMATION
  Report Type: Spontaneous
  Country: US (occurrence: US)
  Receive Date: 20140325
  Receipt Date: 20140325
  Transmission Date: 20141002
  Serious: Yes (Death)
  Sender: FDA-Public Use
  Company Number: US-ROCHE-1370479

PATIENT
  Age: 27 Year
  Sex: Male

DRUGS (12)
  1. CLONAZEPAM [Suspect]
     Indication: PRODUCT USED FOR UNKNOWN INDICATION
     Route: 048
  2. CLONAZEPAM [Suspect]
     Dosage: OVERDOSE
     Route: 048
  3. HYDROXYZINE [Suspect]
     Indication: PRODUCT USED FOR UNKNOWN INDICATION
     Route: 048
  4. HYDROXYZINE [Suspect]
     Dosage: OVERDOSE
     Route: 048
  5. CHLORDIAZEPOXIDE [Suspect]
     Indication: PRODUCT USED FOR UNKNOWN INDICATION
     Route: 048
  6. CHLORDIAZEPOXIDE [Suspect]
     Dosage: OVERDOSE
     Route: 048
  7. PHENOBARBITAL [Suspect]
     Indication: PRODUCT USED FOR UNKNOWN INDICATION
     Route: 048
  8. PHENOBARBITAL [Suspect]
     Dosage: OVERDOSE
     Route: 048
  9. ATOMOXETINE [Suspect]
     Indication: PRODUCT USED FOR UNKNOWN INDICATION
     Route: 048
  10. ATOMOXETINE [Suspect]
     Dosage: OVERDOSE
     Route: 048
  11. MIRTAZAPINE [Suspect]
     Indication: PRODUCT USED FOR UNKNOWN INDICATION
     Route: 048
  12. MIRTAZAPINE [Suspect]
     Dosage: OVERDOSE
     Route: 048

REACTIONS (1)
  - Toxicity to various agents [Fatal]
